FAERS Safety Report 8848834 (Version 1)
Quarter: 2012Q4

REPORT INFORMATION
  Report Type: 
  Country: US (occurrence: US)
  Receive Date: 20121018
  Receipt Date: 20121018
  Transmission Date: 20130627
  Serious: Yes (Hospitalization)
  Sender: FDA-Public Use
  Company Number: US-BAYER-2012-107465

PATIENT
  Age: 27 Year
  Sex: Female
  Weight: 67 kg

DRUGS (7)
  1. YASMIN [Suspect]
  2. OCELLA [Suspect]
  3. OMEPRAZOLE [Concomitant]
     Dosage: 10 mg, UNK
  4. JUNEL FE [Concomitant]
  5. DILAUDID [Concomitant]
     Indication: PAIN
  6. NEXIUM [Concomitant]
     Indication: PEPTIC ULCER
  7. DIFLUCAN [Concomitant]

REACTIONS (2)
  - Deep vein thrombosis [None]
  - Pulmonary embolism [None]
